FAERS Safety Report 9122075 (Version 1)
Quarter: 2013Q1

REPORT INFORMATION
  Report Type: Spontaneous
  Country: CH (occurrence: CH)
  Receive Date: 20130114
  Receipt Date: 20130114
  Transmission Date: 20140127
  Serious: Yes (Other)
  Sender: FDA-Public Use
  Company Number: CH-ASTRAZENECA-2013SE00840

PATIENT
  Age: 82 Year
  Sex: Male

DRUGS (8)
  1. NEXIUM [Suspect]
     Indication: GASTROOESOPHAGEAL REFLUX DISEASE
     Route: 048
  2. HYDROCHLOROTHIAZIDE\LISINOPRIL [Suspect]
     Indication: ESSENTIAL HYPERTENSION
     Dosage: 20/12.5 MG DAILY
     Route: 048
  3. ASPIRIN CARDIO [Suspect]
     Route: 048
  4. AMLODIPIN [Suspect]
     Route: 048
  5. FERRUM HAUSMANN [Suspect]
     Indication: IRON DEFICIENCY
     Route: 048
  6. JANUVIA [Suspect]
     Indication: TYPE 2 DIABETES MELLITUS
     Route: 048
  7. SIMVASTATIN [Suspect]
     Indication: HYPERCHOLESTEROLAEMIA
     Route: 048
  8. PRADIF T [Suspect]
     Indication: BENIGN PROSTATIC HYPERPLASIA
     Route: 048

REACTIONS (1)
  - Pemphigus [Unknown]
